FAERS Safety Report 7645585-7 (Version None)
Quarter: 2011Q3

REPORT INFORMATION
  Report Type: 
  Country: None (occurrence: None)
  Receive Date: 20110729
  Receipt Date: 20110727
  Transmission Date: 20111222
  Serious: Yes (Hospitalization, Other)
  Sender: FDA-Public Use
  Company Number: US-PFIZER INC-2011047044

PATIENT
  Sex: Female

DRUGS (4)
  1. CHANTIX [Suspect]
     Indication: SMOKING CESSATION THERAPY
     Dosage: STARTER PACK AND CONTINUING PACK.
     Route: 048
     Dates: start: 20080522, end: 20080701
  2. CHANTIX [Suspect]
     Dosage: STARTER PACK
     Route: 048
     Dates: start: 20090914, end: 20091001
  3. CHANTIX [Suspect]
     Dosage: STARTER PACK
     Route: 048
     Dates: start: 20100107, end: 20100201
  4. CHANTIX [Suspect]
     Dosage: STARTER PACK
     Route: 048
     Dates: start: 20100601, end: 20100701

REACTIONS (3)
  - SUICIDAL IDEATION [None]
  - LOSS OF CONSCIOUSNESS [None]
  - DEPRESSION [None]
